FAERS Safety Report 14934817 (Version 1)
Quarter: 2018Q2

REPORT INFORMATION
  Report Type: Spontaneous
  Country: ES (occurrence: ES)
  Receive Date: 20180524
  Receipt Date: 20180524
  Transmission Date: 20180711
  Serious: Yes (Death)
  Sender: FDA-Public Use
  Company Number: ES-TEVA-2018-ES-896834

PATIENT
  Age: 21 Year
  Sex: Female

DRUGS (4)
  1. TRAZODONA (3160A) [Suspect]
     Active Substance: TRAZODONE HYDROCHLORIDE
     Indication: DEPRESSION
     Dosage: 100 MILLIGRAM DAILY;
     Route: 048
     Dates: start: 20170807, end: 20180227
  2. HIDROCORTISONA (54A) [Concomitant]
     Active Substance: HYDROCORTISONE
     Indication: HYPERADRENALISM
     Dosage: 10 MILLIGRAM DAILY;
     Route: 048
     Dates: start: 20180227, end: 20180302
  3. CITALOPRAM [Suspect]
     Active Substance: CITALOPRAM HYDROBROMIDE
     Indication: DEPRESSION
     Dosage: 20 MILLIGRAM DAILY;
     Route: 048
     Dates: start: 20170626, end: 20180227
  4. DEXAMETASONA (722A) [Suspect]
     Active Substance: DEXAMETHASONE
     Indication: HYPERADRENALISM
     Dosage: .25 MILLIGRAM DAILY;
     Route: 048
     Dates: start: 2016, end: 20180227

REACTIONS (1)
  - Cushing^s syndrome [Fatal]

NARRATIVE: CASE EVENT DATE: 20180227
